FAERS Safety Report 12108576 (Version 1)
Quarter: 2016Q1

REPORT INFORMATION
  Report Type: Spontaneous
  Country: US (occurrence: None)
  Receive Date: 20160222
  Receipt Date: 20160222
  Transmission Date: 20160526
  Serious: Yes (Hospitalization)
  Sender: FDA-Public Use
  Company Number: None

PATIENT
  Age: 85 Year
  Sex: Female

DRUGS (8)
  1. PREDNISONE. [Concomitant]
     Active Substance: PREDNISONE
  2. ALPRAZOLAM. [Concomitant]
     Active Substance: ALPRAZOLAM
  3. CHLORTHALIDONE. [Concomitant]
     Active Substance: CHLORTHALIDONE
  4. MYCOPHENOLATE [Concomitant]
     Active Substance: MYCOPHENOLIC ACID
  5. WARFARIN [Suspect]
     Active Substance: WARFARIN
     Indication: PULMONARY EMBOLISM
     Route: 048
     Dates: end: 20151104
  6. BACLOFEN. [Concomitant]
     Active Substance: BACLOFEN
  7. VALSARTAN. [Concomitant]
     Active Substance: VALSARTAN
  8. LORATADINE. [Concomitant]
     Active Substance: LORATADINE

REACTIONS (5)
  - Anaemia [None]
  - Dementia [None]
  - Pulmonary embolism [None]
  - Haematoma [None]
  - International normalised ratio increased [None]

NARRATIVE: CASE EVENT DATE: 20151104
